FAERS Safety Report 8027738-1 (Version None)
Quarter: 2012Q1

REPORT INFORMATION
  Report Type: 
  Country: None (occurrence: None)
  Receive Date: 20120106
  Receipt Date: 20111223
  Transmission Date: 20120608
  Serious: Yes (Hospitalization, Other)
  Sender: FDA-Public Use
  Company Number: CA-UCBSA-047290

PATIENT
  Sex: Male

DRUGS (11)
  1. CIMZIA [Suspect]
     Dosage: 400 MG ONCE IN EVERY 2 WEEKS
     Route: 058
     Dates: start: 20110624, end: 20110722
  2. PREDNISONE TAB [Concomitant]
     Indication: RHEUMATOID ARTHRITIS
     Route: 048
     Dates: start: 20111101
  3. VITAMIN B-12 [Concomitant]
     Indication: SUPPLEMENTATION THERAPY
     Dosage: UNKNOWN DOSE
     Route: 030
  4. CIMZIA [Suspect]
     Indication: RHEUMATOID ARTHRITIS
     Dosage: 400 MG ONCE IN EVERY 4 WEEKS; ON HOLD
     Route: 058
     Dates: start: 20110819, end: 20110101
  5. FOLIC ACID [Concomitant]
     Indication: SUPPLEMENTATION THERAPY
     Route: 048
  6. ISONIAZID+VIT B6 [Concomitant]
     Indication: PULMONARY TUBERCULOSIS
     Route: 048
     Dates: start: 20110525
  7. ASPIRIN [Concomitant]
     Indication: CARDIAC DISORDER
     Route: 048
  8. LEVOTHYROXINE SODIUM [Concomitant]
     Indication: THYROID DISORDER
     Route: 048
  9. ADVAIR DISKUS 100/50 [Concomitant]
     Indication: RESPIRATORY DISORDER
     Dosage: DOSE PER INTAKE:II PUFF ; NO. OF INTAKES: BID/PRN ; ROUTE: INHALATIONAL
     Route: 055
  10. REPLAVITE [Concomitant]
     Indication: SUPPLEMENTATION THERAPY
     Route: 048
  11. ARAVA [Concomitant]
     Indication: RHEUMATOID ARTHRITIS
     Route: 048
     Dates: start: 20060301

REACTIONS (5)
  - RENAL DISORDER [None]
  - CEREBROVASCULAR ACCIDENT [None]
  - RENAL CANCER [None]
  - CYSTITIS [None]
  - LUNG INFECTION [None]
